FAERS Safety Report 25118416 (Version 1)
Quarter: 2025Q1

REPORT INFORMATION
  Report Type: Spontaneous
  Country: IN (occurrence: IN)
  Receive Date: 20250325
  Receipt Date: 20250325
  Transmission Date: 20250408
  Serious: Yes (Hospitalization, Other)
  Sender: NOVITIUM PHARMA
  Company Number: IN-NOVITIUMPHARMA-2025INNVP00750

PATIENT
  Age: 45 Year
  Sex: Female

DRUGS (3)
  1. DAPSONE [Suspect]
     Active Substance: DAPSONE
     Indication: Multiple drug therapy
  2. RIFAMPIN [Concomitant]
     Active Substance: RIFAMPIN
     Indication: Multiple drug therapy
  3. CLOFAZIMINE [Concomitant]
     Active Substance: CLOFAZIMINE
     Indication: Multiple drug therapy

REACTIONS (1)
  - Toxic epidermal necrolysis [Recovered/Resolved]
